FAERS Safety Report 5068078-2 (Version None)
Quarter: 2006Q3

REPORT INFORMATION
  Report Type: 
  Country: None (occurrence: None)
  Receive Date: 20060731
  Receipt Date: 20060719
  Transmission Date: 20061208
  Serious: Yes (Life-Threatening, Hospitalization)
  Sender: FDA-Public Use
  Company Number: 2006017551

PATIENT
  Age: 74 Year
  Sex: Female
  Weight: 50.6 kg

DRUGS (14)
  1. SUTENT [Suspect]
     Indication: NON-SMALL CELL LUNG CANCER
     Dosage: 37.5 MG (12.5 MG, 3 IN 1 D), ORAL
     Route: 048
     Dates: start: 20060105, end: 20060125
  2. MICRONASE [Concomitant]
  3. SYNTHROID [Concomitant]
  4. PREMARIN [Concomitant]
  5. POTASSIUM CHLORIDE [Concomitant]
  6. MULTIVITAMIN [Concomitant]
  7. ASPIRIN [Concomitant]
  8. TESSALON [Concomitant]
  9. ALBUTEROL [Concomitant]
  10. SPIRIVA [Concomitant]
  11. LOPRESSOR [Concomitant]
  12. ALTACE [Concomitant]
  13. LOPERAMIDE HCL [Concomitant]
  14. FUROSEMIDE [Concomitant]

REACTIONS (5)
  - BALANCE DISORDER [None]
  - HYPERTENSION [None]
  - OEDEMA PERIPHERAL [None]
  - RESPIRATORY FAILURE [None]
  - WEIGHT INCREASED [None]
